FAERS Safety Report 5743614-9 (Version None)
Quarter: 2008Q2

REPORT INFORMATION
  Report Type: 
  Country: None (occurrence: None)
  Receive Date: 20080520
  Receipt Date: 20080509
  Transmission Date: 20081010
  Serious: Yes (Other)
  Sender: FDA-Public Use
  Company Number: US-BAYER-200813654NA

PATIENT
  Age: 55 Year
  Sex: Male

DRUGS (5)
  1. LEVITRA [Suspect]
     Indication: DRUG USE FOR UNKNOWN INDICATION
     Dosage: TOTAL DAILY DOSE: 10 MG  UNIT DOSE: 10 MG
     Route: 048
     Dates: start: 20080209
  2. ADVICOR [Suspect]
  3. DIOVAN HCT [Concomitant]
  4. ASPIRIN [Concomitant]
     Dosage: TOTAL DAILY DOSE: 325 MG
  5. ADVICOR [Concomitant]

REACTIONS (1)
  - LOSS OF CONSCIOUSNESS [None]
